FAERS Safety Report 18817775 (Version 1)
Quarter: 2021Q1

REPORT INFORMATION
  Report Type: Spontaneous
  Country: CN (occurrence: CN)
  Receive Date: 20210201
  Receipt Date: 20210201
  Transmission Date: 20210419
  Serious: Yes (Hospitalization)
  Sender: FDA-Public Use
  Company Number: CN-SA-2021SA028569

PATIENT
  Age: 50 Year
  Sex: Male

DRUGS (1)
  1. INSULIN GLARGINE [Suspect]
     Active Substance: INSULIN GLARGINE
     Indication: TYPE 2 DIABETES MELLITUS
     Dosage: 10 IU, QD ( BEFORE SLEEP)
     Route: 058
     Dates: start: 20201223, end: 20201225

REACTIONS (4)
  - Polydipsia [Recovering/Resolving]
  - Weight decreased [Recovering/Resolving]
  - Hypoglycaemia [Recovering/Resolving]
  - Polyuria [Recovering/Resolving]

NARRATIVE: CASE EVENT DATE: 20201225
